FAERS Safety Report 6493371-6 (Version None)
Quarter: 2009Q4

REPORT INFORMATION
  Report Type: 
  Country: None (occurrence: None)
  Receive Date: 20091214
  Receipt Date: 20091208
  Transmission Date: 20100525
  Serious: Yes (Hospitalization)
  Sender: FDA-Public Use
  Company Number: KR-BRISTOL-MYERS SQUIBB COMPANY-14861728

PATIENT
  Age: 40 Year
  Sex: Male
  Weight: 57 kg

DRUGS (6)
  1. CISPLATIN [Suspect]
     Indication: METASTATIC GASTRIC CANCER
     Route: 042
     Dates: start: 20091012, end: 20091012
  2. SUTENT [Suspect]
     Indication: METASTATIC GASTRIC CANCER
     Dosage: 2/1 SCHEDULE CYC 2
     Route: 048
     Dates: start: 20091012, end: 20091025
  3. XELODA [Suspect]
     Indication: METASTATIC GASTRIC CANCER
     Dosage: DAY1-14 CYC 2
     Route: 048
     Dates: start: 20091012, end: 20091026
  4. OXYCODONE [Concomitant]
     Dates: start: 20091027
  5. TYLENOL (CAPLET) [Concomitant]
     Dates: start: 20091021, end: 20091022
  6. STILNOX [Concomitant]
     Dates: start: 20091021

REACTIONS (1)
  - GASTROINTESTINAL HAEMORRHAGE [None]
